FAERS Safety Report 9982576 (Version 1)
Quarter: 2014Q1

REPORT INFORMATION
  Report Type: Report from Study
  Country: US (occurrence: US)
  Receive Date: 20140307
  Receipt Date: 20140307
  Transmission Date: 20141002
  Serious: No
  Sender: FDA-Public Use
  Company Number: US-ABBVIE-13P-163-1179232-00

PATIENT
  Age: 67 Year
  Sex: Male

DRUGS (11)
  1. HUMIRA [Suspect]
     Indication: COLITIS ULCERATIVE
     Dates: start: 20131108
  2. SULFASALAZINE [Concomitant]
     Indication: CROHN^S DISEASE
  3. PREDNISONE [Concomitant]
     Indication: CROHN^S DISEASE
  4. APRISO [Concomitant]
     Indication: PRODUCT USED FOR UNKNOWN INDICATION
  5. FENOFIBRATE [Concomitant]
     Indication: CROHN^S DISEASE
  6. PROBIOTICS (WHATEVER ONE IS CHEAPER) [Concomitant]
     Indication: PRODUCT USED FOR UNKNOWN INDICATION
  7. BEANO [Concomitant]
     Indication: FLATULENCE
  8. LISINOPRIL [Concomitant]
     Indication: HYPERTENSION
  9. D3 [Concomitant]
     Indication: PRODUCT USED FOR UNKNOWN INDICATION
  10. OXYCODONE / ACETAMINOPHEN [Concomitant]
     Indication: BACK PAIN
     Dosage: 7.5/500 EVERY 4 HOURS AS NEEDED
  11. OXYCODONE / ACETAMINOPHEN [Concomitant]
     Indication: ARTHRITIS

REACTIONS (1)
  - Drug ineffective [Not Recovered/Not Resolved]
